FAERS Safety Report 8126431-4 (Version None)
Quarter: 2012Q1

REPORT INFORMATION
  Report Type: 
  Country: None (occurrence: None)
  Receive Date: 20120209
  Receipt Date: 20120207
  Transmission Date: 20120608
  Serious: No
  Sender: FDA-Public Use
  Company Number: US-PFIZER INC-2012030470

PATIENT
  Sex: Female
  Weight: 84.354 kg

DRUGS (7)
  1. IBUPROFEN (ADVIL) [Suspect]
     Dosage: 2 CAPSULES EVERY 6 HOURS
     Route: 048
     Dates: start: 20120101, end: 20120201
  2. GLUCOPHAGE [Concomitant]
     Indication: DIABETES MELLITUS
     Dosage: 500 MG, 2X/DAY
  3. GLIPIZIDE [Concomitant]
     Indication: DIABETES MELLITUS
     Dosage: 10 MG
  4. INSULIN DETEMIR [Concomitant]
     Indication: DIABETES MELLITUS
     Dosage: 60 IU, DAILY
  5. IBUPROFEN (ADVIL) [Suspect]
     Dosage: UNK DOSE, 2 CAPSULES EVERY 6 HOURS
     Route: 048
     Dates: start: 20120101, end: 20120203
  6. GLIPIZIDE [Concomitant]
     Dosage: 10 MG, DAILY
  7. IBUPROFEN (ADVIL) [Suspect]
     Dosage: TWO CAPSULES OF 200MG ONCE
     Route: 048
     Dates: start: 20120202

REACTIONS (3)
  - VOMITING [None]
  - MALAISE [None]
  - NAUSEA [None]
